FAERS Safety Report 14133657 (Version 1)
Quarter: 2017Q4

REPORT INFORMATION
  Report Type: Spontaneous
  Country: FR (occurrence: FR)
  Receive Date: 20171026
  Receipt Date: 20171026
  Transmission Date: 20180321
  Serious: Yes (Other)
  Sender: FDA-Public Use
  Company Number: PHHY2017FR137637

PATIENT
  Age: 61 Year
  Sex: Male
  Weight: 102 kg

DRUGS (10)
  1. LOVENOX [Suspect]
     Active Substance: ENOXAPARIN SODIUM
     Indication: MYOCARDIAL ISCHAEMIA
     Dosage: 0.4 ML, UNK
     Route: 058
     Dates: start: 20170812, end: 20170822
  2. LASILIX [Suspect]
     Active Substance: FUROSEMIDE
     Indication: CARDIAC FAILURE
     Dosage: 125 MG, UNK
     Route: 048
     Dates: start: 20170804
  3. KARDEGIC [Suspect]
     Active Substance: ASPIRIN DL-LYSINE
     Indication: THROMBOSIS
  4. AMOXICILLIN. [Concomitant]
     Active Substance: AMOXICILLIN
     Indication: LUNG INFECTION
     Dosage: 6 G, UNK
     Route: 042
     Dates: start: 20170806, end: 20170814
  5. EPLERENONE. [Concomitant]
     Active Substance: EPLERENONE
     Indication: CARDIAC DISORDER
     Dosage: 12.5 MG, UNK
     Route: 048
     Dates: start: 20170812, end: 20170814
  6. ENTRESTO [Suspect]
     Active Substance: SACUBITRIL\VALSARTAN
     Indication: CARDIAC FAILURE
     Dosage: 2 DF, QD
     Route: 048
     Dates: start: 20170811, end: 20170816
  7. LOVENOX [Suspect]
     Active Substance: ENOXAPARIN SODIUM
     Indication: THROMBOSIS
  8. BISOPROLOL [Concomitant]
     Active Substance: BISOPROLOL
     Indication: CARDIAC DISORDER
     Dosage: 2.5 MG, UNK
     Route: 048
     Dates: start: 20170807, end: 20170813
  9. KARDEGIC [Suspect]
     Active Substance: ASPIRIN DL-LYSINE
     Indication: MYOCARDIAL ISCHAEMIA
     Dosage: 75 MG, UNK
     Route: 048
     Dates: start: 20170807, end: 20170816
  10. METRONIDAZOLE. [Concomitant]
     Active Substance: METRONIDAZOLE
     Indication: LUNG INFECTION
     Dosage: 1500 MG, UNK
     Route: 048
     Dates: start: 20170807, end: 20170814

REACTIONS (3)
  - Leukopenia [Recovering/Resolving]
  - Haematochezia [Unknown]
  - Anaemia [Recovering/Resolving]

NARRATIVE: CASE EVENT DATE: 20170816
